FAERS Safety Report 8463134 (Version 4)
Quarter: 2013Q1

REPORT INFORMATION
  Report Type: Spontaneous
  Country: US (occurrence: US)
  Receive Date: 20120316
  Receipt Date: 20130212
  Transmission Date: 20140127
  Serious: Yes (Other)
  Sender: FDA-Public Use
  Company Number: US-PFIZER INC-2012066487

PATIENT
  Age: 55 Year
  Sex: Female
  Weight: 139 kg

DRUGS (6)
  1. LYRICA [Suspect]
     Indication: FIBROMYALGIA
     Dosage: 225 MG, 2X/DAY
     Route: 048
     Dates: start: 2009, end: 20120306
  2. LYRICA [Suspect]
     Indication: PAIN
     Dosage: 225 MG, 1X/DAY
     Route: 048
     Dates: start: 20120307
  3. LYRICA [Suspect]
     Dosage: 300 MG, 2X/DAY
     Route: 048
     Dates: start: 201212
  4. LISINOPRIL [Concomitant]
     Indication: HYPERTENSION
     Dosage: 25 MG, UNK
  5. TRAMADOL [Concomitant]
     Indication: SPINAL PAIN
     Dosage: 100 MG, AS NEEDED
  6. LISINOPRIL W/HYDROCHLOROTHIAZIDE [Concomitant]
     Indication: BLOOD PRESSURE ABNORMAL
     Dosage: 20/25 MG/DAY

REACTIONS (9)
  - Rheumatoid arthritis [Not Recovered/Not Resolved]
  - Cytology abnormal [Not Recovered/Not Resolved]
  - Pain [Not Recovered/Not Resolved]
  - Blood iron decreased [Not Recovered/Not Resolved]
  - Neck pain [Not Recovered/Not Resolved]
  - Drug ineffective [Unknown]
  - Drug intolerance [Unknown]
  - Hypoaesthesia [Unknown]
  - Feeling abnormal [Unknown]
